FAERS Safety Report 13076915 (Version 1)
Quarter: 2016Q4

REPORT INFORMATION
  Report Type: Spontaneous
  Country: US (occurrence: US)
  Receive Date: 20161230
  Receipt Date: 20161230
  Transmission Date: 20170207
  Serious: Yes (Death)
  Sender: FDA-Public Use
  Company Number: US-PFIZER INC-2016600683

PATIENT
  Age: 51 Year
  Sex: Female

DRUGS (1)
  1. TRANEXAMIC ACID. [Suspect]
     Active Substance: TRANEXAMIC ACID
     Indication: COAGULOPATHY
     Dosage: 10 MG/KG/H

REACTIONS (6)
  - Intracardiac thrombus [Fatal]
  - Pulmonary artery thrombosis [Fatal]
  - Cardiac arrest [Fatal]
  - Pulmonary haemorrhage [Fatal]
  - Vena cava thrombosis [Fatal]
  - Portal vein thrombosis [Fatal]
